FAERS Safety Report 7391417-4 (Version None)
Quarter: 2011Q2

REPORT INFORMATION
  Report Type: 
  Country: None (occurrence: None)
  Receive Date: 20110404
  Receipt Date: 20110401
  Transmission Date: 20111010
  Serious: Yes (Other)
  Sender: FDA-Public Use
  Company Number: NO-NAPPMUNDI-GBR-2009-0005955

PATIENT
  Sex: Female

DRUGS (5)
  1. BRICANYL [Concomitant]
     Indication: ASTHMA
     Route: 065
  2. LEVOTHYROXINE SODIUM [Concomitant]
     Indication: PRODUCT USED FOR UNKNOWN INDICATION
     Route: 065
  3. TARGINIQ 10/5 MG DEPOTTABLETT [Suspect]
     Indication: PAIN
     Dosage: 10 MG, Q12H
     Route: 048
     Dates: start: 20091208, end: 20091212
  4. FENTANYL [Concomitant]
     Indication: PRODUCT USED FOR UNKNOWN INDICATION
     Route: 065
  5. SYMBICORT [Concomitant]
     Indication: ASTHMA
     Route: 065

REACTIONS (1)
  - ASTHMA [None]
